FAERS Safety Report 8474759-0 (Version None)
Quarter: 2012Q2

REPORT INFORMATION
  Report Type: 
  Country: None (occurrence: None)
  Receive Date: 20120628
  Receipt Date: 20120618
  Transmission Date: 20120825
  Serious: Yes (Hospitalization)
  Sender: FDA-Public Use
  Company Number: JP-CELGENEUS-087-21660-12063005

PATIENT
  Age: 58 Year
  Sex: Female
  Weight: 58 kg

DRUGS (6)
  1. FAMOTIDINE [Concomitant]
     Indication: GASTRITIS
     Dosage: 40 MILLIGRAM
     Route: 048
     Dates: start: 20120206
  2. LASIX [Concomitant]
     Dosage: 40 MILLIGRAM
     Route: 048
     Dates: start: 20120418
  3. ABRAXANE [Suspect]
     Indication: BREAST CANCER METASTATIC
     Dosage: 260 MILLIGRAM/SQ. METER
     Route: 065
     Dates: start: 20120530, end: 20120530
  4. ALDACTONE [Concomitant]
     Dosage: 50 MILLIGRAM
     Route: 048
     Dates: start: 20120530
  5. CODEINE PHOSPHATE HYDRATE [Concomitant]
     Indication: COUGH
     Dosage: 60 MILLIGRAM
     Route: 048
     Dates: start: 20120516
  6. ALOSENN [Concomitant]
     Indication: CONSTIPATION
     Route: 048

REACTIONS (1)
  - PLEURAL EFFUSION [None]
